FAERS Safety Report 12488084 (Version 1)
Quarter: 2016Q2

REPORT INFORMATION
  Report Type: Spontaneous
  Country: FR (occurrence: FR)
  Receive Date: 20160622
  Receipt Date: 20160622
  Transmission Date: 20160815
  Serious: Yes (Other)
  Sender: FDA-Public Use
  Company Number: FR-BRISTOL-MYERS SQUIBB COMPANY-BMS-2016-048768

PATIENT

DRUGS (1)
  1. ELIQUIS [Suspect]
     Active Substance: APIXABAN
     Indication: CEREBROVASCULAR ACCIDENT PROPHYLAXIS
     Dosage: NOT AVAILABLE
     Route: 065

REACTIONS (5)
  - Anaemia [Unknown]
  - Gastritis [Unknown]
  - Helicobacter infection [Unknown]
  - Gastric haemorrhage [Unknown]
  - Duodenal ulcer [Unknown]
